FAERS Safety Report 8985386 (Version 1)
Quarter: 2012Q4

REPORT INFORMATION
  Report Type: 
  Country: US (occurrence: US)
  Receive Date: 20121226
  Receipt Date: 20121226
  Transmission Date: 20130627
  Serious: Yes (Death)
  Sender: FDA-Public Use
  Company Number: US-PFIZER INC-2012326501

PATIENT
  Age: 83 Year
  Sex: Female

DRUGS (1)
  1. FLECTOR [Suspect]
     Indication: PAIN
     Dosage: UNK

REACTIONS (3)
  - Malnutrition [Fatal]
  - Weight decreased [Unknown]
  - Body height decreased [Unknown]
